FAERS Safety Report 11089154 (Version 1)
Quarter: 2015Q2

REPORT INFORMATION
  Report Type: Spontaneous
  Country: GB (occurrence: GB)
  Receive Date: 20150505
  Receipt Date: 20150505
  Transmission Date: 20150821
  Serious: Yes (Other)
  Sender: FDA-Public Use
  Company Number: GB-ROCHE-1445670

PATIENT
  Sex: Female

DRUGS (2)
  1. HERCEPTIN [Suspect]
     Active Substance: TRASTUZUMAB
     Route: 065
  2. HERCEPTIN [Suspect]
     Active Substance: TRASTUZUMAB
     Indication: PRODUCT USED FOR UNKNOWN INDICATION
     Route: 058

REACTIONS (11)
  - Oedema peripheral [Recovering/Resolving]
  - Peripheral swelling [Unknown]
  - Arthralgia [Recovered/Resolved]
  - Pain [Unknown]
  - Diarrhoea [Unknown]
  - Musculoskeletal discomfort [Unknown]
  - Pain in extremity [Unknown]
  - Micturition urgency [Unknown]
  - Joint swelling [Unknown]
  - Musculoskeletal pain [Unknown]
  - Rheumatoid arthritis [Unknown]
